FAERS Safety Report 20136602 (Version 1)
Quarter: 2021Q4

REPORT INFORMATION
  Report Type: Spontaneous
  Country: CL (occurrence: CL)
  Receive Date: 20211201
  Receipt Date: 20211201
  Transmission Date: 20220303
  Serious: No
  Sender: FDA-Public Use
  Company Number: CL-PFIZER INC-2021853888

PATIENT
  Age: 12 Year
  Sex: Male

DRUGS (1)
  1. GENOTROPIN [Suspect]
     Active Substance: SOMATROPIN
     Dosage: UNK

REACTIONS (8)
  - Injection site papule [Unknown]
  - Pain [Unknown]
  - Drug dose omission by device [Unknown]
  - Injection site pain [Unknown]
  - Expired device used [Unknown]
  - Needle issue [Unknown]
  - Device occlusion [Unknown]
  - Device mechanical issue [Unknown]
